FAERS Safety Report 23634366 (Version 2)
Quarter: 2024Q2

REPORT INFORMATION
  Report Type: Spontaneous
  Country: NL (occurrence: NL)
  Receive Date: 20240314
  Receipt Date: 20240402
  Transmission Date: 20240716
  Serious: Yes (Hospitalization, Other)
  Sender: FDA-Public Use
  Company Number: None

PATIENT
  Age: 74 Year
  Sex: Male
  Weight: 76 kg

DRUGS (4)
  1. CIPROFLOXACIN [Suspect]
     Active Substance: CIPROFLOXACIN
     Indication: Pseudomonas infection
     Dosage: 2 TIMES PER DAY, BRAND NAME NOT SPECIFIED?MEDICINE PRESCRIBED BY DOCTOR: YES
     Route: 065
     Dates: start: 20210723, end: 20210728
  2. COVID-19 VACCINE [Concomitant]
     Indication: COVID-19 immunisation
     Dosage: INJECTION FLUID?PFIZER INJVLST / BRAND NAME NOT SPECIFIED
     Route: 065
     Dates: start: 20210526
  3. ASPIRIN [Concomitant]
     Active Substance: ASPIRIN
     Indication: Product used for unknown indication
     Dosage: DON^T KNOW ANYMORE?PARACETAMOL/COF TAB 250/250/65MG / BRAND NAME NOT SPECIFIED
     Route: 065
  4. CEFTAZIDIME [Suspect]
     Active Substance: CEFTAZIDIME
     Indication: Pseudomonas infection
     Dosage: 6 DAYS PER INFUSION 3X1 GRAM/DAY (I BELIEVE)?INFUSION /CEFTAZIDIME FOR INFUSION NVZA?MEDICINE PRE...
     Route: 065
     Dates: start: 20210728

REACTIONS (6)
  - Pain in extremity [Recovered/Resolved]
  - Peripheral swelling [Recovered/Resolved]
  - Arthralgia [Recovering/Resolving]
  - Neuropathy peripheral [Recovering/Resolving]
  - Chest pain [Recovering/Resolving]
  - Musculoskeletal stiffness [Recovering/Resolving]
